FAERS Safety Report 10065047 (Version 2)
Quarter: 2014Q2

REPORT INFORMATION
  Report Type: Spontaneous
  Country: US (occurrence: US)
  Receive Date: 20140408
  Receipt Date: 20140411
  Transmission Date: 20141212
  Serious: Yes (Hospitalization, Other)
  Sender: FDA-Public Use
  Company Number: US-BRISTOL-MYERS SQUIBB COMPANY-20594917

PATIENT
  Sex: Female

DRUGS (2)
  1. ABILIFY TABS [Suspect]
     Indication: DEPRESSION
     Dosage: RESTARTED 2014
     Route: 048
     Dates: start: 201208
  2. AMOXICILLIN [Concomitant]
     Indication: EAR INFECTION

REACTIONS (3)
  - Cerebrovascular accident [Unknown]
  - Myocardial infarction [Unknown]
  - Cardiac flutter [Unknown]
